FAERS Safety Report 15915106 (Version 1)
Quarter: 2019Q1

REPORT INFORMATION
  Report Type: Spontaneous
  Country: US (occurrence: US)
  Receive Date: 20190111
  Receipt Date: 20190111
  Transmission Date: 20190417
  Serious: Yes (Other)
  Sender: FDA-Public Use
  Company Number: None

PATIENT
  Age: 76 Year
  Sex: Male
  Weight: 107.5 kg

DRUGS (24)
  1. DEXILANT [Concomitant]
     Active Substance: DEXLANSOPRAZOLE
  2. XARELTO [Concomitant]
     Active Substance: RIVAROXABAN
  3. SIMPONI ARIA [Suspect]
     Active Substance: GOLIMUMAB
     Indication: RHEUMATOID ARTHRITIS
     Dates: start: 20180827, end: 20181115
  4. CHLOROXARONE [Concomitant]
  5. NORTRIPTILINE [Concomitant]
  6. ZINC. [Concomitant]
     Active Substance: ZINC
  7. D-3 [Concomitant]
     Active Substance: CHOLECALCIFEROL
  8. IPTRATOPIUM [Concomitant]
  9. NORCO [Concomitant]
     Active Substance: ACETAMINOPHEN\HYDROCODONE BITARTRATE
  10. FOLIC ACID. [Concomitant]
     Active Substance: FOLIC ACID
  11. B-6 [Concomitant]
  12. HYTRIN [Concomitant]
     Active Substance: TERAZOSIN HYDROCHLORIDE
  13. DILAUDID [Concomitant]
     Active Substance: HYDROMORPHONE HYDROCHLORIDE
  14. ALBUTEROL. [Concomitant]
     Active Substance: ALBUTEROL
  15. POTASSIUM CHLORIDE. [Concomitant]
     Active Substance: POTASSIUM CHLORIDE
  16. VITAMIN C [Concomitant]
     Active Substance: ASCORBIC ACID
  17. METHOTREXATE. [Concomitant]
     Active Substance: METHOTREXATE
  18. AMBIEN [Concomitant]
     Active Substance: ZOLPIDEM TARTRATE
  19. MULTIVITAMIN [Concomitant]
     Active Substance: VITAMINS
  20. VITAMIN B12 [Concomitant]
     Active Substance: CYANOCOBALAMIN
  21. CARDIZEM [Concomitant]
     Active Substance: DILTIAZEM HYDROCHLORIDE
  22. NEURONTIN [Concomitant]
     Active Substance: GABAPENTIN
  23. MAGNESIUM [Concomitant]
     Active Substance: MAGNESIUM
  24. LASIX [Concomitant]
     Active Substance: FUROSEMIDE

REACTIONS (3)
  - Heart rate irregular [None]
  - Atrial fibrillation [None]
  - Chest pain [None]
